FAERS Safety Report 6537020-7 (Version None)
Quarter: 2010Q1

REPORT INFORMATION
  Report Type: 
  Country: None (occurrence: None)
  Receive Date: 20100108
  Receipt Date: 20090511
  Transmission Date: 20100710
  Serious: Yes (Hospitalization, Other)
  Sender: FDA-Public Use
  Company Number: KV200800725

PATIENT
  Sex: Female

DRUGS (2)
  1. PROPAFENONE HCL [Suspect]
     Indication: ATRIAL FIBRILLATION
     Dosage: 300 MG, 2 1/2 DAY, ORAL
     Route: 048
     Dates: start: 20060101, end: 20081126
  2. PROPAFENONE HCL [Suspect]
     Indication: ATRIAL FIBRILLATION

REACTIONS (7)
  - ABDOMINAL DISCOMFORT [None]
  - ATRIAL FIBRILLATION [None]
  - CEREBROVASCULAR ACCIDENT [None]
  - DIZZINESS [None]
  - PRODUCT QUALITY ISSUE [None]
  - TREMOR [None]
  - VISION BLURRED [None]
